FAERS Safety Report 8486299-3 (Version None)
Quarter: 2012Q3

REPORT INFORMATION
  Report Type: 
  Country: None (occurrence: None)
  Receive Date: 20120703
  Receipt Date: 20120622
  Transmission Date: 20120928
  Serious: Yes (Hospitalization)
  Sender: FDA-Public Use
  Company Number: US-GLAXOSMITHKLINE-A0813699A

PATIENT
  Age: 49 Year
  Sex: Male

DRUGS (3)
  1. AVANDIA [Suspect]
     Dosage: 8MG PER DAY
     Dates: start: 20000701, end: 20070701
  2. AVANDIA [Suspect]
     Indication: DIABETES MELLITUS
     Dosage: 4MG PER DAY
     Dates: start: 19990101, end: 20000701
  3. AVANDAMET [Suspect]
     Indication: DIABETES MELLITUS
     Dates: start: 20060201

REACTIONS (1)
  - CEREBROVASCULAR ACCIDENT [None]
